FAERS Safety Report 5201651-7 (Version None)
Quarter: 2007Q1

REPORT INFORMATION
  Report Type: 
  Country: None (occurrence: None)
  Receive Date: 20070104
  Receipt Date: 20061227
  Transmission Date: 20070707
  Serious: Yes (Other)
  Sender: FDA-Public Use
  Company Number: 163-20785-06111359

PATIENT
  Age: 53 Year
  Sex: Female
  Weight: 73.0291 kg

DRUGS (14)
  1. THALOMID [Suspect]
     Indication: MULTIPLE MYELOMA
     Dosage: 200 MG, 4IN 1 D, ORAL
     Route: 048
     Dates: start: 20060901, end: 20061129
  2. THALOMID [Suspect]
     Indication: MULTIPLE MYELOMA
     Dosage: 200 MG, 4IN 1 D, ORAL
     Route: 048
     Dates: start: 20061227
  3. ASPIRIN [Concomitant]
  4. AVANDIA (ROSIGLITAZONOE MALEATE) [Concomitant]
  5. BACTRIM [Concomitant]
  6. DEXAMETHASONE [Concomitant]
  7. FENTANYL TRANSDERMAL SYSTEM [Concomitant]
  8. LIPITOR [Concomitant]
  9. METFORMIN [Concomitant]
  10. PERI-COLACE [Concomitant]
  11. PREVACID [Concomitant]
  12. REGLAN [Concomitant]
  13. ZOLOFT [Concomitant]
  14. ZOMETA [Concomitant]

REACTIONS (3)
  - BLOOD HUMAN CHORIONIC GONADOTROPIN INCREASED [None]
  - OVARIAN CYST [None]
  - PREGNANCY TEST FALSE POSITIVE [None]
